FAERS Safety Report 8099935-0 (Version None)
Quarter: 2012Q1

REPORT INFORMATION
  Report Type: 
  Country: None (occurrence: None)
  Receive Date: 20120129
  Receipt Date: 20111128
  Transmission Date: 20120608
  Serious: No
  Sender: FDA-Public Use
  Company Number: US-ABBOTT-11P-163-0878394-00

PATIENT
  Age: 69 Year
  Sex: Male

DRUGS (9)
  1. TERAZOSIN HCL [Concomitant]
     Indication: URINARY RETENTION
  2. HUMIRA [Suspect]
     Indication: PSORIASIS
     Dates: start: 20111105
  3. COUMADIN [Concomitant]
     Indication: PULMONARY EMBOLISM
     Dosage: MONDAY-FRIDAY
     Dates: start: 20061229
  4. COUMADIN [Concomitant]
     Dosage: SATURDAY AND SUNDAY
     Dates: start: 20061229
  5. TRAMADOL HCL [Concomitant]
     Indication: ARTHRALGIA
     Dosage: NOT CURRENTLY TAKING UNTIL SEEING NEW PHYSICIAN
  6. HYDROXYZINE [Concomitant]
     Indication: PSORIASIS
  7. VERAPAMIL [Concomitant]
     Indication: HYPERTENSION
  8. HYDROXYZINE [Concomitant]
     Indication: PRURITUS
  9. RESCUE INHALER [Concomitant]
     Indication: ASTHMA
     Dates: start: 20061201

REACTIONS (6)
  - WHEEZING [None]
  - PRODUCTIVE COUGH [None]
  - NAUSEA [None]
  - DYSPNOEA [None]
  - PYREXIA [None]
  - PSORIASIS [None]
